FAERS Safety Report 7377286-7 (Version None)
Quarter: 2011Q1

REPORT INFORMATION
  Report Type: 
  Country: None (occurrence: None)
  Receive Date: 20110316
  Receipt Date: 20110305
  Transmission Date: 20110831
  Serious: Yes (Hospitalization)
  Sender: FDA-Public Use
  Company Number: 2011SP000728

PATIENT
  Age: 53 Year
  Sex: Female
  Weight: 75 kg

DRUGS (1)
  1. LATUDA [Suspect]
     Indication: BIPOLAR DISORDER
     Dosage: 60 MG;QD;ORAL
     Route: 048
     Dates: start: 20101115, end: 20110301

REACTIONS (8)
  - IMPAIRED WORK ABILITY [None]
  - THERAPEUTIC RESPONSE DECREASED [None]
  - DEPRESSION [None]
  - DISTURBANCE IN ATTENTION [None]
  - INSOMNIA [None]
  - DECREASED APPETITE [None]
  - FATIGUE [None]
  - ANXIETY [None]
